FAERS Safety Report 9524127 (Version 1)
Quarter: 2013Q3

REPORT INFORMATION
  Report Type: Spontaneous
  Country: US (occurrence: None)
  Receive Date: 20130912
  Receipt Date: 20130912
  Transmission Date: 20140515
  Serious: Yes (Disabling)
  Sender: FDA-Public Use
  Company Number: None

PATIENT
  Age: 52 Year
  Sex: 0
  Weight: 70.31 kg

DRUGS (1)
  1. RISPERDAL [Suspect]
     Indication: DEPRESSION
     Dates: start: 20111214, end: 20111221

REACTIONS (3)
  - Parkinsonism [None]
  - Depression [None]
  - Sleep disorder [None]
